FAERS Safety Report 24167934 (Version 1)
Quarter: 2024Q3

REPORT INFORMATION
  Report Type: Spontaneous
  Country: CN (occurrence: CN)
  Receive Date: 20240802
  Receipt Date: 20240802
  Transmission Date: 20241016
  Serious: Yes (Other)
  Sender: MERCK
  Company Number: CN-009507513-2407CHN016120

PATIENT
  Age: 71 Year
  Sex: Male
  Weight: 75 kg

DRUGS (5)
  1. KEYTRUDA [Suspect]
     Active Substance: PEMBROLIZUMAB
     Indication: Lung neoplasm malignant
     Dosage: 200 MG, Q3W (ALSO REPORTED AS ONCE), D1
     Route: 041
     Dates: start: 20240616, end: 20240616
  2. PACLITAXEL [Suspect]
     Active Substance: PACLITAXEL
     Indication: Lung neoplasm malignant
     Dosage: 480 MILLIGRAM, Q3W DAY 1
     Route: 041
     Dates: start: 20240616, end: 20240616
  3. PACLITAXEL [Suspect]
     Active Substance: PACLITAXEL
     Dosage: 480 MILLIGRAM, Q3W DAY 1
     Route: 041
     Dates: start: 202407, end: 202407
  4. CARBOPLATIN [Suspect]
     Active Substance: CARBOPLATIN
     Dosage: 0.54 (UNIT WAS UNKNOWN), Q3W DAY 1
     Route: 041
     Dates: start: 20240616, end: 20240616
  5. CARBOPLATIN [Suspect]
     Active Substance: CARBOPLATIN
     Dosage: 0.54 (UNIT WAS UNKNOWN), Q3W DAY 1
     Route: 041
     Dates: start: 202407, end: 202407

REACTIONS (2)
  - Myocarditis [Recovering/Resolving]
  - Myocardial injury [Unknown]

NARRATIVE: CASE EVENT DATE: 20240708
